FAERS Safety Report 7762457-8 (Version None)
Quarter: 2011Q3

REPORT INFORMATION
  Report Type: 
  Country: None (occurrence: None)
  Receive Date: 20110920
  Receipt Date: 20110628
  Transmission Date: 20111222
  Serious: No
  Sender: FDA-Public Use
  Company Number: US-MYLANLABS-2011S1013585

PATIENT
  Age: 24 Year
  Sex: Male
  Weight: 74.84 kg

DRUGS (4)
  1. FLUVOXAMINE MALEATE [Concomitant]
     Indication: OBSESSIVE-COMPULSIVE DISORDER
     Dates: start: 20110301
  2. FISH OIL [Concomitant]
     Dates: start: 20110201
  3. RISPERIDONE [Suspect]
     Indication: OBSESSIVE-COMPULSIVE DISORDER
     Route: 048
     Dates: start: 20110611
  4. INOSITOL [Concomitant]
     Indication: OBSESSIVE-COMPULSIVE DISORDER
     Dates: start: 20110301

REACTIONS (3)
  - FATIGUE [None]
  - ANXIETY [None]
  - SOMNOLENCE [None]
